FAERS Safety Report 8761853 (Version 2)
Quarter: 2012Q4

REPORT INFORMATION
  Report Type: Spontaneous
  Country: US (occurrence: None)
  Receive Date: 20120822
  Receipt Date: 20120830
  Transmission Date: 20130627
  Serious: Yes (Hospitalization)
  Sender: FDA-Public Use
  Company Number: 2012AP002404

PATIENT
  Age: 62 Year
  Sex: Female

DRUGS (6)
  1. CARBAMAZEPINE [Suspect]
     Indication: BIPOLAR DISORDER
     Route: 048
     Dates: start: 2005
  2. VORICONAZOLE [Suspect]
     Indication: FUNGAL INFECTION
     Route: 048
  3. VORICONAZOLE [Suspect]
     Indication: FUNGAL INFECTION
     Route: 048
  4. VORICONAZOLE [Suspect]
     Indication: FUNGAL INFECTION
     Route: 040
  5. VORICONAZOLE [Suspect]
     Indication: FUNGAL INFECTION
     Route: 042
  6. AMBISOME [Concomitant]

REACTIONS (2)
  - Drug level below therapeutic [None]
  - Drug interaction [None]
